FAERS Safety Report 9274687 (Version 1)
Quarter: 2013Q2

REPORT INFORMATION
  Report Type: Report from Study
  Country: CN (occurrence: CN)
  Receive Date: 20130507
  Receipt Date: 20130507
  Transmission Date: 20140414
  Serious: Yes (Death)
  Sender: FDA-Public Use
  Company Number: CN-ROCHE-1221872

PATIENT
  Age: 60 Year
  Sex: Male
  Weight: 58 kg

DRUGS (1)
  1. AVASTIN [Suspect]
     Indication: COLON CANCER
     Route: 041
     Dates: start: 20120715

REACTIONS (1)
  - Disease progression [Fatal]
